FAERS Safety Report 11658980 (Version 1)
Quarter: 2015Q4

REPORT INFORMATION
  Report Type: Spontaneous
  Country: BE (occurrence: BE)
  Receive Date: 20151026
  Receipt Date: 20151026
  Transmission Date: 20160304
  Serious: Yes (Hospitalization)
  Sender: FDA-Public Use
  Company Number: BE-SUN PHARMACEUTICAL INDUSTRIES LTD-2015R1-105158

PATIENT
  Age: 17 Year
  Sex: Male

DRUGS (9)
  1. FLUCLOXACILLIN [Suspect]
     Active Substance: FLUCLOXACILLIN
     Indication: PRODUCT USED FOR UNKNOWN INDICATION
     Dosage: UNK
     Route: 042
  2. FUSIDIC ACID [Suspect]
     Active Substance: FUSIDIC ACID
     Indication: SKIN LESION
     Dosage: UNK, BID
     Route: 061
  3. FLUCLOXACILLIN [Suspect]
     Active Substance: FLUCLOXACILLIN
     Indication: HERPES SIMPLEX
     Dosage: 500 MG, QID
     Route: 065
  4. TRIPELENNAMINE [Suspect]
     Active Substance: TRIPELENNAMINE
  5. ACICLOVIR [Suspect]
     Active Substance: ACYCLOVIR
     Indication: HERPES SIMPLEX
     Dosage: 5 X 800 MG, DAILY
     Route: 065
  6. SCOPOLAMINE HYDROBROMIDE. [Suspect]
     Active Substance: SCOPOLAMINE HYDROBROMIDE
  7. CAFFEINE. [Suspect]
     Active Substance: CAFFEINE
     Indication: MOTION SICKNESS
     Dosage: UNK
     Route: 054
  8. ACICLOVIR [Suspect]
     Active Substance: ACYCLOVIR
     Indication: PRODUCT USED FOR UNKNOWN INDICATION
     Dosage: UNK
     Route: 042
  9. DIMETINDENE [Suspect]
     Active Substance: DIMETHINDENE
     Indication: PRURITUS
     Dosage: 3 MG, DAILY
     Route: 048

REACTIONS (2)
  - Condition aggravated [Recovered/Resolved]
  - Stevens-Johnson syndrome [Recovered/Resolved]
